FAERS Safety Report 9091318 (Version 1)
Quarter: 2013Q1

REPORT INFORMATION
  Report Type: Report from Study
  Country: US (occurrence: US)
  Receive Date: 20130201
  Receipt Date: 20130201
  Transmission Date: 20140127
  Serious: No
  Sender: FDA-Public Use
  Company Number: US-ABBOTT-12P-163-1027002-00

PATIENT
  Age: 41 Year
  Sex: Female
  Weight: 62.2 kg

DRUGS (2)
  1. HUMIRA [Suspect]
     Indication: RHEUMATOID ARTHRITIS
     Route: 058
     Dates: start: 201211
  2. PREDNISONE [Concomitant]
     Indication: RHEUMATOID ARTHRITIS

REACTIONS (3)
  - Pyrexia [Recovered/Resolved]
  - Influenza [Recovering/Resolving]
  - Cough [Not Recovered/Not Resolved]
